FAERS Safety Report 10190079 (Version 1)
Quarter: 2014Q2

REPORT INFORMATION
  Report Type: Spontaneous
  Country: US (occurrence: US)
  Receive Date: 20140522
  Receipt Date: 20140522
  Transmission Date: 20141212
  Serious: Yes (Other)
  Sender: FDA-Public Use
  Company Number: US-AMGEN-USASP2014037755

PATIENT
  Age: 68 Year
  Sex: Male

DRUGS (4)
  1. ENBREL [Suspect]
     Indication: PRODUCT USED FOR UNKNOWN INDICATION
     Dosage: 50 MG, QWK
     Route: 065
     Dates: start: 20140401
  2. ARAVA [Concomitant]
     Dosage: UNK
  3. PREDNISONE [Concomitant]
     Dosage: UNK
  4. AMBIEN [Concomitant]
     Dosage: UNK

REACTIONS (1)
  - Prostate cancer [Unknown]
